FAERS Safety Report 16139745 (Version 3)
Quarter: 2019Q2

REPORT INFORMATION
  Report Type: Spontaneous
  Country: US (occurrence: US)
  Receive Date: 20190401
  Receipt Date: 20190417
  Transmission Date: 20190711
  Serious: Yes (Death, Other)
  Sender: FDA-Public Use
  Company Number: US-HORIZON-RAV-0074-2019

PATIENT
  Age: 41 Year
  Sex: Female

DRUGS (1)
  1. RAVICTI [Suspect]
     Active Substance: GLYCEROL PHENYLBUTYRATE
     Indication: PRODUCT USED FOR UNKNOWN INDICATION
     Dates: start: 20150501

REACTIONS (3)
  - Hepatic cancer [Unknown]
  - Death [Fatal]
  - Abdominal distension [Unknown]

NARRATIVE: CASE EVENT DATE: 20190327
